FAERS Safety Report 20425708 (Version 2)
Quarter: 2022Q1

REPORT INFORMATION
  Report Type: Report from Study
  Country: DE (occurrence: DE)
  Receive Date: 20220204
  Receipt Date: 20220315
  Transmission Date: 20220423
  Serious: Yes (Other)
  Sender: FDA-Public Use
  Company Number: DE-CELLTRION INC.-2022DE000811

PATIENT

DRUGS (7)
  1. TRASTUZUMAB [Suspect]
     Active Substance: TRASTUZUMAB
     Indication: HER2 positive breast cancer
     Dosage: LAST DOSE BEFORE SAE 03/12/2021: 6 MG/MG2 (EVERY 3 WEEKS)
     Route: 041
     Dates: start: 20210421, end: 20211203
  2. CYCLOPHOSPHAMIDE [Suspect]
     Active Substance: CYCLOPHOSPHAMIDE
     Indication: HER2 positive breast cancer
     Dosage: TOTAL DOSE OF LAST ADMINISTRATION BEFORE SAE ONSET: 600 MG/M2 (EVERY 3 WEEKS)
     Route: 042
     Dates: start: 20210217, end: 20210331
  3. PACLITAXEL [Suspect]
     Active Substance: PACLITAXEL
     Indication: HER2 positive breast cancer
     Dosage: TOTAL DOSE OF LAST ADMINISTRATION BEFORE SAE ONSET: 90MG/M2 (EVERY 3 WEEKS)
     Route: 042
     Dates: start: 20210422, end: 20210615
  4. ATEZOLIZUMAB [Suspect]
     Active Substance: ATEZOLIZUMAB
     Indication: HER2 positive breast cancer
     Dosage: TOTAL DOSE OF LAST ADMINISTRATION BEFORE SAE ONSET: 1200 MG (EVERY 3 WEEKS)
     Route: 041
     Dates: start: 20210217, end: 20211203
  5. CARBOPLATIN [Suspect]
     Active Substance: CARBOPLATIN
     Indication: HER2 positive breast cancer
     Dosage: TOTAL DOSE OF LAST ADMINISTRATION BEFORE SAE ONSET: 2 AUC (EVERY 3 WEEKS)
     Route: 042
     Dates: start: 20210422, end: 20210615
  6. DOXORUBICIN [Suspect]
     Active Substance: DOXORUBICIN
     Indication: HER2 positive breast cancer
     Dosage: TOTAL DOSE OF LAST ADMINISTRATION BEFORE SAE ONSET: 60MG/M2 (EVERY 3 WEEKS)
     Route: 042
     Dates: start: 20210217, end: 20210331
  7. PERTUZUMAB [Concomitant]
     Active Substance: PERTUZUMAB
     Indication: HER2 positive breast cancer
     Dosage: TOTAL DOSE OF LAST ADMINISTRATION BEFORE SAE ONSET: 420 MG/M2
     Route: 042
     Dates: start: 20210421, end: 20211203

REACTIONS (2)
  - Pneumonitis [Recovered/Resolved]
  - Off label use [Unknown]

NARRATIVE: CASE EVENT DATE: 20211227
